FAERS Safety Report 15821441 (Version 1)
Quarter: 2019Q1

REPORT INFORMATION
  Report Type: Spontaneous
  Country: US (occurrence: US)
  Receive Date: 20190113
  Receipt Date: 20190113
  Transmission Date: 20190417
  Serious: No
  Sender: FDA-Public Use
  Company Number: None

PATIENT
  Age: 47 Year
  Sex: Female
  Weight: 83.25 kg

DRUGS (1)
  1. LEVAQUIN [Suspect]
     Active Substance: LEVOFLOXACIN
     Indication: TOOTH INFECTION
     Dates: start: 20171020, end: 20171025

REACTIONS (3)
  - Joint stiffness [None]
  - Arthralgia [None]
  - Joint noise [None]

NARRATIVE: CASE EVENT DATE: 20171020
